FAERS Safety Report 15429287 (Version 5)
Quarter: 2019Q3

REPORT INFORMATION
  Report Type: Spontaneous
  Country: AU (occurrence: AU)
  Receive Date: 20180926
  Receipt Date: 20190812
  Transmission Date: 20191004
  Serious: Yes (Hospitalization, Other)
  Sender: FDA-Public Use
  Company Number: AU-MYLANLABS-2018M1070409

PATIENT
  Age: 59 Year
  Sex: Female

DRUGS (1)
  1. CLOZARIL [Suspect]
     Active Substance: CLOZAPINE
     Indication: SCHIZOPHRENIA
     Dosage: 350 MG, UNK
     Route: 048
     Dates: start: 19960105

REACTIONS (5)
  - Fall [Unknown]
  - Mental impairment [Unknown]
  - Schizophrenia [Unknown]
  - Impaired self-care [Unknown]
  - Malaise [Unknown]

NARRATIVE: CASE EVENT DATE: 201809
